FAERS Safety Report 4713510-4 (Version None)
Quarter: 2005Q3

REPORT INFORMATION
  Report Type: 
  Country: None (occurrence: None)
  Receive Date: 20050713
  Receipt Date: 20050603
  Transmission Date: 20060218
  Serious: Yes (Hospitalization)
  Sender: FDA-Public Use
  Company Number: FR-JNJFOC-20050701259

PATIENT
  Age: 83 Year
  Sex: Female

DRUGS (5)
  1. TOPALGIC [Suspect]
     Indication: PAIN
     Route: 049
  2. PLAVIX [Suspect]
     Indication: PROPHYLAXIS
     Route: 049
  3. ELISOR [Concomitant]
     Route: 049
  4. OMEPRAZOLE [Concomitant]
     Route: 049
  5. LASIX [Concomitant]
     Route: 049

REACTIONS (1)
  - THROMBOCYTOPENIA [None]
